FAERS Safety Report 16798077 (Version 3)
Quarter: 2020Q2

REPORT INFORMATION
  Report Type: Report from Study
  Country: CO (occurrence: CO)
  Receive Date: 20190912
  Receipt Date: 20200602
  Transmission Date: 20200713
  Serious: Yes (Hospitalization, Other)
  Sender: FDA-Public Use
  Company Number: CO-ASTELLAS-2019US035987

PATIENT
  Age: 70 Year
  Sex: Male

DRUGS (17)
  1. TACROLIMUS. [Suspect]
     Active Substance: TACROLIMUS
     Indication: RENAL TRANSPLANT
     Dosage: 3 MG, ONCE DAILY (3 CAPSULES OF 1 MG)
     Route: 048
     Dates: start: 20140516, end: 2018
  2. TACROLIMUS. [Suspect]
     Active Substance: TACROLIMUS
     Dosage: 1MG ONE DAY, 2MG THE NEXT DAY
     Route: 048
     Dates: start: 20200301
  3. MYCOPHENOLATE [Concomitant]
     Active Substance: MYCOPHENOLIC ACID
     Indication: RENAL TRANSPLANT
     Dosage: 360 MG, TWICE DAILY (ONE TABLET IN THE MORNING AND ONE TABLET AT NIGHT)
     Route: 048
     Dates: start: 20140516
  4. LIPOTIC [Concomitant]
     Indication: NEUROPATHY PERIPHERAL
     Route: 048
  5. TACROLIMUS. [Suspect]
     Active Substance: TACROLIMUS
     Route: 048
     Dates: end: 20200229
  6. PREDNISOLONE. [Concomitant]
     Active Substance: PREDNISOLONE
     Indication: ANTIINFLAMMATORY THERAPY
     Dosage: 5 MG (ONE DF), EVERY 3 DAYS.
     Route: 048
     Dates: start: 20140516
  7. ROSUVASTATIN. [Concomitant]
     Active Substance: ROSUVASTATIN
     Indication: INSOMNIA
     Route: 048
     Dates: start: 20140516
  8. PRAZOSIN. [Concomitant]
     Active Substance: PRAZOSIN
     Indication: HYPERTENSION
     Route: 048
     Dates: start: 201912
  9. ESOMEPRAZOLE. [Concomitant]
     Active Substance: ESOMEPRAZOLE MAGNESIUM
     Indication: ULCERATIVE GASTRITIS
     Dosage: 40 MG (ONE), ONCE DAILY
     Route: 048
     Dates: start: 20140516
  10. GLUCERNA [Suspect]
     Active Substance: AMINO ACIDS\DEXTROSE\ELECTROLYTES NOS\SOYBEAN OIL\VITAMINS
     Indication: PRODUCT USED FOR UNKNOWN INDICATION
     Dosage: UNK UNK, UNKNOWN FREQ.
     Route: 048
  11. MYCOPHENOLATE [Concomitant]
     Active Substance: MYCOPHENOLIC ACID
     Indication: PRODUCT USED FOR UNKNOWN INDICATION
     Dosage: UNK UNK, UNKNOWN FREQ.
     Route: 048
  12. LOSARTAN. [Concomitant]
     Active Substance: LOSARTAN
     Indication: HYPERTENSION
     Dosage: 50 MG (ONE), ONCE DAILY
     Route: 048
     Dates: start: 20140516
  13. APIDRA [Concomitant]
     Active Substance: INSULIN GLULISINE
     Indication: DIABETES MELLITUS
     Dosage: 5 IU, THRICE DAILY (100U/ML, BEFORE EACH MEAL)
     Route: 058
  14. TACROLIMUS. [Suspect]
     Active Substance: TACROLIMUS
     Dosage: 1.5 MG (1 CAPSULE OF 1 MG AND 1 CAPSULE OF 0.5 MG), ONCE DAILY
     Route: 048
     Dates: start: 2018
  15. TACROLIMUS. [Suspect]
     Active Substance: TACROLIMUS
     Route: 048
     Dates: start: 20200519
  16. ACETYLSALICYLIC ACID [Concomitant]
     Active Substance: ASPIRIN
     Indication: ANTICOAGULANT THERAPY
     Dosage: 10 MG (ONE), ONCE DAILY
     Route: 048
     Dates: start: 20140516
  17. INSULIN DEGLUDEC [Concomitant]
     Active Substance: INSULIN DEGLUDEC
     Indication: DIABETES MELLITUS
     Dosage: 10 IU, ONCE DAILY (EVERY NIGHT) (BEFORE TRANSPLANT)
     Route: 058

REACTIONS (10)
  - Deafness [Unknown]
  - Product distribution issue [Unknown]
  - Weight decreased [Unknown]
  - Intentional product use issue [Unknown]
  - Coma [Recovered/Resolved]
  - Coordination abnormal [Unknown]
  - Toxicity to various agents [Unknown]
  - Blindness [Unknown]
  - Diarrhoea [Unknown]
  - Autonomic nervous system imbalance [Unknown]

NARRATIVE: CASE EVENT DATE: 20181227
